FAERS Safety Report 4970619-8 (Version None)
Quarter: 2006Q1

REPORT INFORMATION
  Report Type: 
  Country: None (occurrence: None)
  Receive Date: 20060208
  Receipt Date: 20050413
  Transmission Date: 20060701
  Serious: Yes (Other)
  Sender: FDA-Public Use
  Company Number: PHEH2004US06514

PATIENT
  Age: 4 Year
  Sex: Male
  Weight: 16.8 kg

DRUGS (2)
  1. ELIDEL [Suspect]
     Indication: ECZEMA
     Dosage: 1-2/DAY FOR 3 WKS, OFF 1 WK, TOPICAL
     Route: 061
     Dates: start: 20040317, end: 20040614
  2. ALBUTEROL [Concomitant]

REACTIONS (6)
  - BLISTER [None]
  - CRYING [None]
  - INFLAMMATION [None]
  - MOLLUSCUM CONTAGIOSUM [None]
  - PRURITUS [None]
  - SKIN HAEMORRHAGE [None]
